FAERS Safety Report 5638696-9 (Version None)
Quarter: 2008Q1

REPORT INFORMATION
  Report Type: 
  Country: None (occurrence: None)
  Receive Date: 20080226
  Receipt Date: 20080207
  Transmission Date: 20080703
  Serious: No
  Sender: FDA-Public Use
  Company Number: A0692961A

PATIENT
  Age: 50 Year
  Sex: Female

DRUGS (3)
  1. IMITREX [Suspect]
     Indication: MIGRAINE
     Dosage: 1INJ AS REQUIRED
     Route: 058
  2. SYNTHROID [Concomitant]
  3. WELLBUTRIN [Concomitant]

REACTIONS (5)
  - ARTHROPOD STING [None]
  - DRUG INEFFECTIVE [None]
  - GASTROINTESTINAL HYPERMOTILITY [None]
  - PAIN [None]
  - PHARMACEUTICAL PRODUCT COMPLAINT [None]
